FAERS Safety Report 12987868 (Version 6)
Quarter: 2017Q2

REPORT INFORMATION
  Report Type: Report from Study
  Country: CA (occurrence: CA)
  Receive Date: 20161130
  Receipt Date: 20170421
  Transmission Date: 20170830
  Serious: Yes (Hospitalization, Other)
  Sender: FDA-Public Use
  Company Number: PHHY2012CA102474

PATIENT
  Age: 67 Year
  Sex: Male

DRUGS (7)
  1. SANDOSTATIN LAR DEPOT [Suspect]
     Active Substance: OCTREOTIDE ACETATE
     Dosage: 20 MG, QMO (Q 4 WEEKS)
     Route: 030
     Dates: start: 20150303, end: 20160707
  2. PRO GLYBURIDE [Concomitant]
     Dosage: 5 MG, UNK
     Route: 065
  3. PRO GLYBURIDE [Concomitant]
     Indication: DIABETES MELLITUS
     Dosage: 2.5 MG, UNK
     Route: 065
  4. AMOXICLAV [Concomitant]
     Active Substance: AMOXICILLIN\CLAVULANIC ACID
     Indication: PRODUCT USED FOR UNKNOWN INDICATION
     Route: 065
  5. SANDOSTATIN LAR DEPOT [Suspect]
     Active Substance: OCTREOTIDE ACETATE
     Indication: CARCINOID TUMOUR
     Dosage: 20 MG, QMO (EVERY 4 WEEKS)
     Route: 030
     Dates: start: 20090219, end: 20090220
  6. METFORMIN [Concomitant]
     Active Substance: METFORMIN HYDROCHLORIDE
     Indication: PRODUCT USED FOR UNKNOWN INDICATION
     Route: 065
  7. SANDOSTATIN LAR DEPOT [Suspect]
     Active Substance: OCTREOTIDE ACETATE
     Dosage: 30 MG, QMO
     Route: 030
     Dates: start: 20160804

REACTIONS (18)
  - Blood pressure systolic increased [Unknown]
  - Nausea [Unknown]
  - Malignant neoplasm progression [Unknown]
  - Recurrent cancer [Unknown]
  - Anaemia [Not Recovered/Not Resolved]
  - Malaise [Unknown]
  - Blood pressure diastolic decreased [Unknown]
  - Fatigue [Unknown]
  - Blood glucose increased [Unknown]
  - Heart rate increased [Unknown]
  - Injection site pain [Unknown]
  - Urinary tract infection [Unknown]
  - Pyelonephritis [Unknown]
  - Small intestinal haemorrhage [Unknown]
  - Body temperature decreased [Unknown]
  - Decreased appetite [Unknown]
  - Diabetes mellitus inadequate control [Unknown]
  - Pneumonia [Unknown]

NARRATIVE: CASE EVENT DATE: 20140124
